FAERS Safety Report 12321034 (Version 1)
Quarter: 2016Q2

REPORT INFORMATION
  Report Type: Report from Study
  Country: US (occurrence: US)
  Receive Date: 20160502
  Receipt Date: 20160502
  Transmission Date: 20160815
  Serious: Yes (Life-Threatening, Hospitalization, Other)
  Sender: FDA-Public Use
  Company Number: US-AMGEN-USASL2016046430

PATIENT
  Age: 83 Year
  Sex: Female

DRUGS (1)
  1. PROLIA [Suspect]
     Active Substance: DENOSUMAB
     Indication: OSTEOPOROSIS
     Dosage: UNK
     Route: 065
     Dates: start: 20150828

REACTIONS (15)
  - Headache [Unknown]
  - Myalgia [Unknown]
  - Fear of injection [Unknown]
  - Arthralgia [Unknown]
  - Infection [Unknown]
  - Hyperhidrosis [Not Recovered/Not Resolved]
  - Chills [Not Recovered/Not Resolved]
  - Fatigue [Not Recovered/Not Resolved]
  - Tremor [Unknown]
  - Constipation [Not Recovered/Not Resolved]
  - Fear [Unknown]
  - Rheumatoid arthritis [Unknown]
  - Tearfulness [Not Recovered/Not Resolved]
  - Anger [Unknown]
  - Abdominal discomfort [Not Recovered/Not Resolved]

NARRATIVE: CASE EVENT DATE: 2015
